FAERS Safety Report 8062962-3 (Version None)
Quarter: 2012Q1

REPORT INFORMATION
  Report Type: 
  Country: None (occurrence: None)
  Receive Date: 20120123
  Receipt Date: 20120109
  Transmission Date: 20120608
  Serious: Yes (Hospitalization)
  Sender: FDA-Public Use
  Company Number: US-MYLANLABS-2012S1000834

PATIENT
  Age: 51 Year
  Sex: Female

DRUGS (6)
  1. ESOMEPRAZOLE SODIUM [Concomitant]
     Route: 065
  2. LEVOTHYROXINE SODIUM [Concomitant]
     Route: 065
  3. ASPIRIN [Concomitant]
     Route: 065
  4. METOPROLOL TARTRATE [Concomitant]
     Route: 065
  5. ISOSORBIDE MONONITRATE [Concomitant]
     Route: 065
  6. FUROSEMIDE [Suspect]
     Route: 065

REACTIONS (5)
  - HIATUS HERNIA [None]
  - DYSPNOEA [None]
  - GASTRITIS [None]
  - GASTROINTESTINAL TRACT MUCOSAL PIGMENTATION [None]
  - ANAEMIA [None]
